FAERS Safety Report 21540844 (Version 1)
Quarter: 2022Q4

REPORT INFORMATION
  Report Type: Spontaneous
  Country: US (occurrence: US)
  Receive Date: 20221102
  Receipt Date: 20221102
  Transmission Date: 20230112
  Serious: Yes (Hospitalization, Other)
  Sender: FDA-Public Use
  Company Number: US-drreddys-SPO/USA/22/0156592

PATIENT
  Age: 45 Year
  Sex: Female

DRUGS (6)
  1. GEMCITABINE [Suspect]
     Active Substance: GEMCITABINE
     Indication: Cholangiocarcinoma
     Route: 013
  2. GEMCITABINE [Suspect]
     Active Substance: GEMCITABINE
     Indication: Transcatheter arterial chemoembolisation
  3. IRINOTECAN [Suspect]
     Active Substance: IRINOTECAN
     Indication: Cholangiocarcinoma
     Route: 013
  4. IRINOTECAN [Suspect]
     Active Substance: IRINOTECAN
     Indication: Transcatheter arterial chemoembolisation
  5. CARBOPLATIN [Suspect]
     Active Substance: CARBOPLATIN
     Indication: Cholangiocarcinoma
     Route: 013
  6. CARBOPLATIN [Suspect]
     Active Substance: CARBOPLATIN
     Indication: Transcatheter arterial chemoembolisation

REACTIONS (1)
  - Febrile neutropenia [Unknown]
